FAERS Safety Report 8801846 (Version 2)
Quarter: 2015Q2

REPORT INFORMATION
  Report Type: Report from Study
  Country: US (occurrence: US)
  Receive Date: 20120921
  Receipt Date: 20150623
  Transmission Date: 20150821
  Serious: Yes (Death)
  Sender: FDA-Public Use
  Company Number: US-ROCHE-1102861

PATIENT
  Sex: Male

DRUGS (25)
  1. AVASTIN [Suspect]
     Active Substance: BEVACIZUMAB
     Indication: HAEMATOLOGICAL MALIGNANCY
     Route: 042
  2. DEXAMETHASONE. [Concomitant]
     Active Substance: DEXAMETHASONE
     Route: 042
  3. VINBLASTINE [Concomitant]
     Active Substance: VINBLASTINE
     Route: 042
  4. DILAUDID [Concomitant]
     Active Substance: HYDROMORPHONE HYDROCHLORIDE
     Dosage: EVERY 4-6 HRS
     Route: 065
  5. OXYCODONE [Concomitant]
     Active Substance: OXYCODONE
     Dosage: 7.5/500 MG
     Route: 065
  6. MEGACE [Concomitant]
     Active Substance: MEGESTROL ACETATE
     Route: 065
  7. LEUCOVORIN [Concomitant]
     Active Substance: LEUCOVORIN
     Route: 042
  8. OXYCONTIN [Concomitant]
     Active Substance: OXYCODONE HYDROCHLORIDE
     Route: 065
  9. PERCOCET [Concomitant]
     Active Substance: ACETAMINOPHEN\OXYCODONE HYDROCHLORIDE
     Dosage: 1-2 TABLETS 4HRS PRN
     Route: 065
  10. BENADRYL [Concomitant]
     Active Substance: DIPHENHYDRAMINE HYDROCHLORIDE
     Route: 042
  11. KYTRIL [Concomitant]
     Active Substance: GRANISETRON HYDROCHLORIDE
     Route: 042
  12. GEMZAR [Concomitant]
     Active Substance: GEMCITABINE HYDROCHLORIDE
     Route: 065
  13. MARINOL (UNITED STATES) [Concomitant]
     Route: 065
  14. OXYCONTIN [Concomitant]
     Active Substance: OXYCODONE HYDROCHLORIDE
     Route: 065
  15. AMBIEN [Concomitant]
     Active Substance: ZOLPIDEM TARTRATE
  16. VICODIN [Concomitant]
     Active Substance: ACETAMINOPHEN\HYDROCODONE BITARTRATE
  17. 5-FLUOROURACIL [Concomitant]
     Active Substance: FLUOROURACIL
     Route: 042
  18. OXYCONTIN [Concomitant]
     Active Substance: OXYCODONE HYDROCHLORIDE
     Route: 065
  19. ARANESP [Concomitant]
     Active Substance: DARBEPOETIN ALFA
     Route: 058
  20. ZOMETA [Concomitant]
     Active Substance: ZOLEDRONIC ACID
     Route: 042
  21. AVASTIN [Suspect]
     Active Substance: BEVACIZUMAB
     Route: 042
     Dates: start: 200410
  22. AVASTIN [Suspect]
     Active Substance: BEVACIZUMAB
     Route: 042
  23. FILGRASTIM [Concomitant]
     Active Substance: FILGRASTIM
     Route: 065
  24. AVASTIN [Suspect]
     Active Substance: BEVACIZUMAB
     Indication: RENAL CANCER
     Route: 042
     Dates: start: 200404
  25. HYDROMORPHONE [Concomitant]
     Active Substance: HYDROMORPHONE
     Route: 065

REACTIONS (14)
  - Decreased appetite [Unknown]
  - Anaemia [Unknown]
  - Upper extremity mass [Unknown]
  - Bone neoplasm [Fatal]
  - Fatigue [Unknown]
  - Insomnia [Unknown]
  - Lymphadenopathy [Unknown]
  - Leukaemia [Unknown]
  - Off label use [Unknown]
  - Disease progression [Unknown]
  - Metastatic pain [Unknown]
  - Asthenia [Unknown]
  - Weight decreased [Unknown]
  - Renal cell carcinoma [Fatal]
